FAERS Safety Report 5045807-5 (Version None)
Quarter: 2006Q2

REPORT INFORMATION
  Report Type: 
  Country: None (occurrence: None)
  Receive Date: 20060601
  Receipt Date: 20060213
  Transmission Date: 20061013
  Serious: No
  Sender: FDA-Public Use
  Company Number: 2005-BP-21529BP

PATIENT
  Age: 77 Year
  Sex: 0

DRUGS (7)
  1. SPIRIVA [Suspect]
     Indication: CHRONIC OBSTRUCTIVE PULMONARY DISEASE
     Dosage: 18 MCG (18 MCG), IH
     Route: 055
     Dates: start: 20050101
  2. PREVACID [Concomitant]
  3. ATROVENT AND SALINE SOLUTION [Concomitant]
  4. MUCINEX [Concomitant]
  5. BENZONATATE [Concomitant]
  6. VITAMINS [Concomitant]
  7. OXYGEN (OXYGEN) [Concomitant]

REACTIONS (1)
  - AGEUSIA [None]
